FAERS Safety Report 10597727 (Version 2)
Quarter: 2014Q4

REPORT INFORMATION
  Report Type: Spontaneous
  Country: US (occurrence: None)
  Receive Date: 20141119
  Receipt Date: 20141205
  Transmission Date: 20150529
  Serious: Yes (Other)
  Sender: FDA-Public Use
  Company Number: ADR-2014-02146

PATIENT
  Age: 43 Year
  Sex: Female

DRUGS (2)
  1. BACLOFEN INTRATHECAL (300 MCG/ML) [Suspect]
     Active Substance: BACLOFEN
     Indication: MUSCLE SPASTICITY
  2. OXYCODONE [Suspect]
     Active Substance: OXYCODONE

REACTIONS (14)
  - Abdominal pain [None]
  - Abdominal distension [None]
  - Post procedural complication [None]
  - Stress [None]
  - Implant site extravasation [None]
  - Anxiety [None]
  - Pain [None]
  - Pneumonia [None]
  - Tremor [None]
  - Headache [None]
  - Fatigue [None]
  - Pyrexia [None]
  - Nausea [None]
  - Movement disorder [None]

NARRATIVE: CASE EVENT DATE: 20141005
